FAERS Safety Report 5217942-X (Version None)
Quarter: 2007Q1

REPORT INFORMATION
  Report Type: 
  Country: None (occurrence: None)
  Receive Date: 20061130
  Receipt Date: 20060705
  Transmission Date: 20070707
  Serious: Yes (Hospitalization)
  Sender: FDA-Public Use
  Company Number: US200607000549

PATIENT
  Age: 78 Year
  Sex: Male
  Weight: 86.2 kg

DRUGS (8)
  1. ZYPREXA [Suspect]
     Indication: AGITATION
     Dosage: 5 MG; 25 MG
     Dates: start: 20051216, end: 20051217
  2. DIVALPROEX SODIUM [Concomitant]
  3. LISINOPRIL [Concomitant]
  4. LOVASTATIN [Concomitant]
  5. ASPIRIN [Concomitant]
  6. CALCIUM CARBONATE (CALCIUM CARBONATE) [Concomitant]
  7. DONEPEZIL HCL [Concomitant]
  8. LORAZEPAM [Concomitant]

REACTIONS (3)
  - MENTAL STATUS CHANGES [None]
  - PRESCRIBED OVERDOSE [None]
  - TREMOR [None]
